FAERS Safety Report 8623641 (Version 3)
Quarter: 2012Q4

REPORT INFORMATION
  Report Type: Report from Study
  Country: PL (occurrence: PL)
  Receive Date: 20120620
  Receipt Date: 20120911
  Transmission Date: 20130627
  Serious: Yes (Death, Life-Threatening, Hospitalization)
  Sender: FDA-Public Use
  Company Number: PL-AMGEN-POLCT2012036975

PATIENT
  Age: 79 Year
  Sex: Female
  Weight: 47 kg

DRUGS (24)
  1. PANITUMUMAB [Suspect]
     Indication: COLORECTAL CANCER
     Dosage: UNK
     Dates: start: 20110616, end: 20120614
  2. AMLODIPINE [Concomitant]
     Indication: HYPERTENSION
     Dosage: UNK
     Route: 048
     Dates: start: 19900615
  3. ZINC [Concomitant]
     Indication: SKIN TOXICITY
     Dosage: UNK
     Route: 061
     Dates: start: 20110705
  4. POLPRAZOL [Concomitant]
     Indication: DYSPEPSIA
     Dosage: UNK
     Route: 048
     Dates: start: 20111007
  5. HYDROCORTISONE [Concomitant]
     Indication: SKIN TOXICITY
     Dosage: UNK
     Route: 061
     Dates: start: 20111117
  6. TRIMETAZIDINE [Concomitant]
     Indication: PROPHYLAXIS
     Dosage: UNK
     Route: 048
     Dates: start: 20040615
  7. MAGNESIUM [Concomitant]
     Indication: HYPOMAGNESAEMIA
     Dosage: UNK
     Route: 048
     Dates: start: 20110811
  8. FURAGINUM [Concomitant]
     Indication: URINARY TRACT INFECTION
     Dosage: UNK
     Route: 048
     Dates: start: 20120118
  9. PROTIFAR [Concomitant]
     Indication: HYPOALBUMINAEMIA
     Dosage: UNK
     Route: 048
     Dates: start: 20111230, end: 20120613
  10. POTASSIUM [Concomitant]
     Indication: HYPOKALAEMIA
     Dosage: UNK
     Dates: start: 20111230
  11. SIMVASTATIN [Concomitant]
     Indication: HYPERCHOLESTEROLAEMIA
     Dosage: UNK
     Route: 048
     Dates: start: 20110520
  12. TRAMADOL [Concomitant]
     Indication: ABDOMINAL PAIN
     Dosage: UNK
     Route: 048
     Dates: start: 20120322, end: 20120613
  13. NO-SPA [Concomitant]
     Indication: ABDOMINAL PAIN
     Dosage: UNK
     Route: 048
     Dates: start: 20120308, end: 20120613
  14. DUPHALAC [Concomitant]
     Indication: CONSTIPATION
     Dosage: UNK
     Route: 048
     Dates: start: 20120406, end: 20120613
  15. METIZOL [Concomitant]
     Indication: HYPERTHYROIDISM
     Dosage: UNK
     Route: 048
     Dates: start: 20120229, end: 20120509
  16. MEGACE [Concomitant]
     Indication: DECREASED APPETITE
     Dosage: UNK
     Route: 048
     Dates: start: 20120531, end: 20120613
  17. LEVOXA [Concomitant]
     Indication: URINARY TRACT INFECTION
     Route: 048
     Dates: start: 20120406, end: 20120524
  18. AUGMENTIN [Concomitant]
     Indication: URINARY TRACT INFECTION
     Route: 048
     Dates: start: 20120524, end: 20120531
  19. METOCLOPRAMID [Concomitant]
     Indication: VOMITING
     Route: 048
     Dates: start: 20120426, end: 20120516
  20. SIGNOPAM [Concomitant]
     Indication: INSOMNIA
     Route: 048
     Dates: start: 20120426, end: 20120429
  21. BISOCARD [Concomitant]
     Indication: TACHYCARDIA
     Route: 048
     Dates: start: 20120426, end: 20120429
  22. KETONAL [Concomitant]
     Indication: ABDOMINAL PAIN
     Route: 042
     Dates: start: 20120419, end: 20120419
  23. TRILAC [Concomitant]
     Indication: DIARRHOEA
     Route: 048
     Dates: start: 20120524, end: 20120531
  24. LACTULOSUM [Concomitant]
     Indication: CONSTIPATION
     Route: 048
     Dates: start: 20120426, end: 20120530

REACTIONS (2)
  - Colon cancer [Fatal]
  - Intestinal obstruction [Recovered/Resolved]
